FAERS Safety Report 18331089 (Version 3)
Quarter: 2020Q4

REPORT INFORMATION
  Report Type: Spontaneous
  Country: US (occurrence: US)
  Receive Date: 20200930
  Receipt Date: 20201030
  Transmission Date: 20210113
  Serious: No
  Sender: FDA-Public Use
  Company Number: US-VERTEX PHARMACEUTICALS-2020-019204

PATIENT
  Sex: Male
  Weight: 14.06 kg

DRUGS (2)
  1. ORKAMBI [Suspect]
     Active Substance: IVACAFTOR\LUMACAFTOR
     Indication: CYSTIC FIBROSIS
     Dosage: (100MG LUMACAFTOR/125MG IVACAFTOR)
     Route: 048
     Dates: start: 201912
  2. ORKAMBI [Suspect]
     Active Substance: IVACAFTOR\LUMACAFTOR
     Dosage: (150 MG LUMACAFTOR/188MG IVACAFTOR)
     Route: 048
     Dates: start: 20200526

REACTIONS (2)
  - Behaviour disorder [Unknown]
  - Gait disturbance [Recovered/Resolved]

NARRATIVE: CASE EVENT DATE: 2020
